FAERS Safety Report 7342764-3 (Version None)
Quarter: 2011Q1

REPORT INFORMATION
  Report Type: 
  Country: None (occurrence: None)
  Receive Date: 20110310
  Receipt Date: 20081226
  Transmission Date: 20110831
  Serious: Yes (Death, Hospitalization, Other)
  Sender: FDA-Public Use
  Company Number: US-BAYER-200841469NA

PATIENT
  Sex: Male
  Weight: 79.365 kg

DRUGS (22)
  1. LISINOPRIL [Concomitant]
     Indication: HYPERTENSION
     Route: 048
  2. TRASYLOL [Suspect]
     Indication: AORTIC VALVE REPLACEMENT
     Dosage: 200CC LOADING DOSE THEN CONTINUOUS INFUSION
     Route: 042
     Dates: start: 20050127, end: 20050127
  3. HEPARIN [Concomitant]
     Dosage: UNK
     Route: 042
     Dates: start: 20050127, end: 20050127
  4. CONTRAST MEDIA [Concomitant]
     Indication: CATHETERISATION CARDIAC
     Dosage: UNK
     Dates: start: 20030401
  5. TRASYLOL [Suspect]
     Indication: AORTIC ANEURYSM REPAIR
     Dosage: 200CC OVER 30 MINUTES THEN CONTINUOUS INFUSION AT 50CC/HOUR
     Route: 042
     Dates: start: 20030513, end: 20030513
  6. TRASYLOL [Suspect]
     Indication: PHLEBECTOMY
  7. TRASYLOL [Suspect]
     Indication: CORONARY ARTERY BYPASS
  8. AVAPRO [Concomitant]
     Indication: HYPERTENSION
     Dosage: 150 MG, UNK
     Route: 048
  9. ALBUMIN (HUMAN) [Concomitant]
     Indication: PRODUCT USED FOR UNKNOWN INDICATION
     Dosage: UNK
     Route: 042
     Dates: start: 20030513, end: 20030513
  10. CLINDAMYCIN [Concomitant]
     Indication: PRODUCT USED FOR UNKNOWN INDICATION
     Dosage: 900 MG, UNK
     Route: 042
     Dates: start: 20030513, end: 20030513
  11. PLAVIX [Concomitant]
     Dosage: 75 MG, UNK
     Route: 048
  12. ALBUMIN (HUMAN) [Concomitant]
     Dosage: UNK
     Route: 042
     Dates: start: 20050127, end: 20050127
  13. HEPARIN [Concomitant]
     Indication: PRODUCT USED FOR UNKNOWN INDICATION
     Dosage: UNK
     Route: 042
     Dates: start: 20030513, end: 20030513
  14. ASPIRIN [Concomitant]
     Dosage: 81 MG, UNK
     Route: 048
  15. CONTRAST MEDIA [Concomitant]
     Dosage: UNK
     Dates: start: 20050126
  16. ANCEF [Concomitant]
     Indication: PRODUCT USED FOR UNKNOWN INDICATION
     Dosage: UNK
     Route: 042
     Dates: start: 20050127, end: 20050127
  17. VITAMIN E [Concomitant]
     Dosage: 400 MG, UNK
     Route: 048
  18. TRASYLOL [Suspect]
     Indication: STERNOTOMY
  19. CALCIUM CHLORIDE [Concomitant]
     Indication: PRODUCT USED FOR UNKNOWN INDICATION
     Dosage: UNK
     Route: 042
     Dates: start: 20030513, end: 20030513
  20. LIPITOR [Concomitant]
     Dosage: 10 MG, UNK
     Route: 048
  21. LASIX [Concomitant]
     Dosage: 20 MG, UNK
     Route: 048
  22. NIACIN [Concomitant]
     Indication: PRODUCT USED FOR UNKNOWN INDICATION
     Dosage: 500 MG, UNK
     Route: 048

REACTIONS (16)
  - DEATH [None]
  - CEREBROVASCULAR ACCIDENT [None]
  - ANXIETY [None]
  - ADVERSE EVENT [None]
  - RENAL FAILURE [None]
  - MULTI-ORGAN FAILURE [None]
  - PAIN [None]
  - BLINDNESS UNILATERAL [None]
  - FEAR [None]
  - RENAL INJURY [None]
  - ANHEDONIA [None]
  - EMOTIONAL DISTRESS [None]
  - STRESS [None]
  - UNEVALUABLE EVENT [None]
  - INJURY [None]
  - RENAL IMPAIRMENT [None]
